FAERS Safety Report 6052674-X (Version None)
Quarter: 2009Q1

REPORT INFORMATION
  Report Type: 
  Country: None (occurrence: None)
  Receive Date: 20090127
  Receipt Date: 20090119
  Transmission Date: 20090719
  Serious: Yes (Hospitalization)
  Sender: FDA-Public Use
  Company Number: FR-BAXTER-2009BH001026

PATIENT
  Age: 64 Year
  Sex: Female

DRUGS (5)
  1. ENDOXAN BAXTER [Suspect]
     Indication: BREAST CANCER
     Route: 042
     Dates: start: 20080410, end: 20080410
  2. EPIRUBICIN HCL [Suspect]
     Indication: BREAST CANCER
     Route: 042
     Dates: start: 20080410, end: 20080410
  3. FLUOROURACIL [Suspect]
     Indication: BREAST CANCER
     Route: 042
     Dates: start: 20080410, end: 20080410
  4. LEVOTHYROX [Concomitant]
  5. NEULASTA [Concomitant]
     Dates: start: 20080411, end: 20080411

REACTIONS (2)
  - COUGH [None]
  - FEBRILE BONE MARROW APLASIA [None]
